FAERS Safety Report 4861007-3 (Version None)
Quarter: 2005Q4

REPORT INFORMATION
  Report Type: 
  Country: None (occurrence: None)
  Receive Date: 20051220
  Receipt Date: 20050715
  Transmission Date: 20060501
  Serious: No
  Sender: FDA-Public Use
  Company Number: US-GLAXOSMITHKLINE-A0566450A

PATIENT
  Sex: Female

DRUGS (3)
  1. TAGAMET [Suspect]
     Indication: GASTRIC DISORDER
     Dosage: 200MG FOUR TIMES PER DAY
     Route: 048
  2. THYROID TAB [Concomitant]
  3. VASOTEC [Concomitant]

REACTIONS (3)
  - EATING DISORDER [None]
  - NAUSEA [None]
  - WEIGHT DECREASED [None]
